FAERS Safety Report 12978812 (Version 1)
Quarter: 2016Q4

REPORT INFORMATION
  Report Type: Spontaneous
  Country: IT (occurrence: IT)
  Receive Date: 20161128
  Receipt Date: 20161128
  Transmission Date: 20170207
  Serious: Yes (Hospitalization, Other)
  Sender: FDA-Public Use
  Company Number: IT-JNJFOC-20161023596

PATIENT
  Age: 49 Year
  Sex: Female

DRUGS (1)
  1. HALOPERIDOL. [Suspect]
     Active Substance: HALOPERIDOL
     Indication: ANXIETY
     Route: 065

REACTIONS (2)
  - Oromandibular dystonia [Recovered/Resolved]
  - Drug diversion [Recovered/Resolved]
